FAERS Safety Report 8881257 (Version 2)
Quarter: 2012Q4

REPORT INFORMATION
  Report Type: 
  Country: US (occurrence: US)
  Receive Date: 20121031
  Receipt Date: 20121228
  Transmission Date: 20130627
  Serious: Yes (Death, Hospitalization, Other)
  Sender: FDA-Public Use
  Company Number: US-B.I. PHARMACEUTICALS,INC./RIDGEFIELD-2012-BP-26960BP

PATIENT
  Age: 53 None
  Sex: Male
  Weight: 132 kg

DRUGS (26)
  1. PRADAXA [Suspect]
  2. SYNTHROID [Concomitant]
     Dosage: 150 mcg
  3. SPIRIVA [Concomitant]
     Dosage: 1 puf
  4. ADVAIR 50/500 [Concomitant]
     Dosage: 2 puf
  5. ALBUTEROL [Concomitant]
  6. CRESTOR [Concomitant]
     Dosage: 10 mg
  7. LASIX [Concomitant]
     Dosage: 40 mg
  8. PREDNISONE [Concomitant]
     Dosage: 40 mg
  9. AMBIEN [Concomitant]
  10. LEVBID [Concomitant]
  11. AMITIZA [Concomitant]
  12. METHYLPREDNISOLONE [Concomitant]
  13. DILTIAZEM [Concomitant]
  14. LEVALBUTEROL [Concomitant]
  15. ALPRAZOLAM [Concomitant]
  16. PRIMIDONE [Concomitant]
     Dosage: 50 mg
  17. XANAX [Concomitant]
     Dosage: 1 mg
  18. K-DUR [Concomitant]
     Dosage: 20 mg
  19. LANTUS [Concomitant]
  20. TIAZAC [Concomitant]
     Dosage: 480 mg
  21. XARELTO [Concomitant]
     Indication: THROMBOSIS PROPHYLAXIS
     Dosage: 20 mg
  22. DIAMOX [Concomitant]
     Dosage: 250 mg
  23. DIGOXIN [Concomitant]
  24. HYDROCODONE [Concomitant]
     Dosage: 20 mg
  25. PROTONIX [Concomitant]
     Dosage: 40 mg
  26. AMITIZIA [Concomitant]
     Indication: DIARRHOEA

REACTIONS (3)
  - Death [Fatal]
  - Pneumonia [Unknown]
  - Gastrointestinal haemorrhage [Unknown]
